FAERS Safety Report 6551975-6 (Version None)
Quarter: 2010Q1

REPORT INFORMATION
  Report Type: 
  Country: None (occurrence: None)
  Receive Date: 20100120
  Receipt Date: 20100107
  Transmission Date: 20100710
  Serious: Yes (Other)
  Sender: FDA-Public Use
  Company Number: 004192

PATIENT
  Sex: Female
  Weight: 87.9 kg

DRUGS (8)
  1. CIMZIA [Suspect]
     Indication: CROHN'S DISEASE
     Dosage: (SUBCUTANEOUS)
     Route: 058
     Dates: start: 20090926
  2. ANTIVERT /00007101/ [Concomitant]
  3. RISPERDAL [Concomitant]
  4. ASACOL [Concomitant]
  5. ZOCOR [Concomitant]
  6. IRON [Concomitant]
  7. FERROUS SULFATE TAB [Concomitant]
  8. LEXAPRO [Concomitant]

REACTIONS (6)
  - BALANCE DISORDER [None]
  - FALL [None]
  - IODINE ALLERGY [None]
  - MENTAL STATUS CHANGES [None]
  - STARING [None]
  - WEIGHT DECREASED [None]
